FAERS Safety Report 6795824-X (Version None)
Quarter: 2010Q2

REPORT INFORMATION
  Report Type: 
  Country: None (occurrence: None)
  Receive Date: 20100625
  Receipt Date: 20100617
  Transmission Date: 20101027
  Serious: Yes (Hospitalization)
  Sender: FDA-Public Use
  Company Number: A0852071A

PATIENT
  Age: 55 Year
  Sex: Female
  Weight: 119.1 kg

DRUGS (12)
  1. AVANDIA [Suspect]
     Indication: DIABETES MELLITUS
     Dosage: 4MG TWICE PER DAY
     Route: 048
     Dates: start: 20000101
  2. AVANDAMET [Suspect]
     Indication: DIABETES MELLITUS
     Route: 048
     Dates: start: 20041011
  3. GLUCOTROL [Concomitant]
  4. ADVAIR DISKUS 100/50 [Concomitant]
  5. TOPROL-XL [Concomitant]
  6. NEXIUM [Concomitant]
  7. MONOPRIL [Concomitant]
  8. PROTONIX [Concomitant]
  9. ZOCOR [Concomitant]
  10. MAXZIDE [Concomitant]
  11. GLIPIZIDE [Concomitant]
  12. CELEBREX [Concomitant]

REACTIONS (2)
  - CARDIAC FAILURE CONGESTIVE [None]
  - LUNG DISORDER [None]
